FAERS Safety Report 5683881-3 (Version None)
Quarter: 2008Q1

REPORT INFORMATION
  Report Type: 
  Country: None (occurrence: None)
  Receive Date: 20080328
  Receipt Date: 20080328
  Transmission Date: 20080703
  Serious: Yes (Life-Threatening, Hospitalization)
  Sender: FDA-Public Use
  Company Number: None

PATIENT
  Age: 55 Year
  Sex: Female
  Weight: 133 kg

DRUGS (2)
  1. HEPARIN [Suspect]
     Indication: DIALYSIS
     Dosage: INTRAVASCULAR
     Dates: start: 20080326, end: 20080326
  2. HEPARIN [Suspect]
     Indication: INDWELLING CATHETER MANAGEMENT
     Dosage: INTRAVASCULAR
     Dates: start: 20080326, end: 20080326

REACTIONS (2)
  - HYPOTENSION [None]
  - UNRESPONSIVE TO STIMULI [None]
